FAERS Safety Report 5954629-X (Version None)
Quarter: 2008Q4

REPORT INFORMATION
  Report Type: 
  Country: None (occurrence: None)
  Receive Date: 20081117
  Receipt Date: 20081112
  Transmission Date: 20090506
  Serious: Yes (Hospitalization)
  Sender: FDA-Public Use
  Company Number: US-BRISTOL-MYERS SQUIBB COMPANY-14206718

PATIENT
  Age: 64 Year
  Sex: Female

DRUGS (14)
  1. DASATINIB [Suspect]
     Indication: BREAST CANCER
     Route: 048
     Dates: start: 20080417, end: 20080523
  2. CAPECITABINE [Suspect]
     Indication: BREAST CANCER
     Route: 048
     Dates: start: 20080417, end: 20080519
  3. HYDROXYZINE HCL [Concomitant]
     Dates: start: 20080428
  4. COENZYME Q10 [Concomitant]
     Dates: start: 20000501
  5. FISH OIL [Concomitant]
     Dates: start: 20070901
  6. SYNTHROID [Concomitant]
     Dates: start: 20080501
  7. MAGNESIUM CITRATE [Concomitant]
     Dates: start: 20071201
  8. ZOFRAN [Concomitant]
     Dates: start: 20070401
  9. PROBIOTICA [Concomitant]
     Dates: start: 20061201
  10. ASCORBIC ACID [Concomitant]
     Dates: start: 20000501
  11. VITAMIN D [Concomitant]
     Dosage: 1 DOSAGE FORM = 5000 UNITS
     Dates: start: 20060301
  12. CLINDAMYCIN HCL [Concomitant]
     Dates: start: 20080430, end: 20080509
  13. IODORAL [Concomitant]
  14. IRON CITRATE [Concomitant]
     Dates: start: 20071201

REACTIONS (2)
  - DIARRHOEA [None]
  - HYPOKALAEMIA [None]
